FAERS Safety Report 8813052 (Version 2)
Quarter: 2012Q4

REPORT INFORMATION
  Report Type: 
  Country: US (occurrence: US)
  Receive Date: 20120927
  Receipt Date: 20121108
  Transmission Date: 20130627
  Serious: No
  Sender: FDA-Public Use
  Company Number: US-ASTRAZENECA-2012SE72689

PATIENT
  Age: 26 Year
  Sex: Male

DRUGS (2)
  1. SEROQUEL [Suspect]
     Indication: SLEEP DISORDER
     Route: 048
  2. SEROQUEL [Suspect]
     Indication: SLEEP DISORDER
     Route: 048

REACTIONS (5)
  - Bradyphrenia [Unknown]
  - Somnolence [Unknown]
  - Somnolence [Unknown]
  - Restless legs syndrome [Unknown]
  - Intentional drug misuse [Unknown]
